FAERS Safety Report 21460202 (Version 1)
Quarter: 2022Q4

REPORT INFORMATION
  Report Type: Spontaneous
  Country: US (occurrence: US)
  Receive Date: 20221014
  Receipt Date: 20221014
  Transmission Date: 20230113
  Serious: No
  Sender: FDA-Public Use
  Company Number: US-Indivior Limited-INDV-131192-2021

PATIENT
  Sex: Female

DRUGS (1)
  1. SUBLOCADE [Suspect]
     Active Substance: BUPRENORPHINE
     Indication: Drug dependence
     Dosage: 300 MILLIGRAM, QMO (2 INJECTIONS)
     Route: 058
     Dates: start: 20210826

REACTIONS (6)
  - Injection site hypertrophy [Unknown]
  - Injection site pain [Recovered/Resolved]
  - Injection site erythema [Recovered/Resolved]
  - Injection site necrosis [Not Recovered/Not Resolved]
  - Drug withdrawal syndrome [Recovered/Resolved]
  - Injection site discharge [Not Recovered/Not Resolved]

NARRATIVE: CASE EVENT DATE: 20210101
